FAERS Safety Report 6723283-1 (Version None)
Quarter: 2010Q2

REPORT INFORMATION
  Report Type: 
  Country: None (occurrence: None)
  Receive Date: 20100512
  Receipt Date: 20100512
  Transmission Date: 20101027
  Serious: Yes (Hospitalization)
  Sender: FDA-Public Use
  Company Number: None

PATIENT
  Sex: Male
  Weight: 92.5 kg

DRUGS (11)
  1. ALIMTA [Suspect]
  2. TAXOTERE [Suspect]
  3. FISH OIL [Concomitant]
  4. LISINOPRIL [Concomitant]
  5. MORPHINE SULFATE [Concomitant]
  6. MORPHINE SULFATE IR [Concomitant]
  7. TEMAZEPAM [Concomitant]
  8. CLEAR LAX POWDER [Concomitant]
  9. GENERIC COLACE [Concomitant]
  10. OMEPRAZOLE [Concomitant]
  11. CITRATE OF MAGNESIA [Concomitant]

REACTIONS (1)
  - PYREXIA [None]
